FAERS Safety Report 17957806 (Version 1)
Quarter: 2020Q2

REPORT INFORMATION
  Report Type: Spontaneous
  Country: IN (occurrence: IN)
  Receive Date: 20200629
  Receipt Date: 20200629
  Transmission Date: 20200714
  Serious: Yes (Other)
  Sender: FDA-Public Use
  Company Number: IN-MYLANLABS-2020M1059194

PATIENT
  Age: 37 Year
  Sex: Female

DRUGS (8)
  1. AMOXICILLIN/CLAVULANIC ACID [Suspect]
     Active Substance: AMOXICILLIN\CLAVULANIC ACID
     Indication: CHRONIC MYELOID LEUKAEMIA
     Route: 065
  2. IMATINIB. [Suspect]
     Active Substance: IMATINIB MESYLATE
     Indication: CHRONIC MYELOID LEUKAEMIA
     Route: 065
  3. AMOXICILLIN/CLAVULANIC ACID [Suspect]
     Active Substance: AMOXICILLIN\CLAVULANIC ACID
     Indication: ONCOLOGIC COMPLICATION
  4. ACECLOFENAC [Concomitant]
     Active Substance: ACECLOFENAC
     Indication: CHRONIC MYELOID LEUKAEMIA
     Route: 065
  5. ACECLOFENAC [Concomitant]
     Active Substance: ACECLOFENAC
     Indication: ONCOLOGIC COMPLICATION
  6. IMATINIB. [Suspect]
     Active Substance: IMATINIB MESYLATE
     Indication: ONCOLOGIC COMPLICATION
  7. ALLOPURINOL. [Concomitant]
     Active Substance: ALLOPURINOL
     Indication: ONCOLOGIC COMPLICATION
  8. ALLOPURINOL. [Concomitant]
     Active Substance: ALLOPURINOL
     Indication: CHRONIC MYELOID LEUKAEMIA
     Route: 065

REACTIONS (4)
  - Hepatotoxicity [Unknown]
  - Hyperpyrexia [Unknown]
  - Mouth ulceration [Unknown]
  - Vomiting [Unknown]
